FAERS Safety Report 8839789 (Version 1)
Quarter: 2012Q4

REPORT INFORMATION
  Report Type: 
  Country: US (occurrence: US)
  Receive Date: 20121015
  Receipt Date: 20121015
  Transmission Date: 20130627
  Serious: Yes (Disabling)
  Sender: FDA-Public Use
  Company Number: US-BRISTOL-MYERS SQUIBB COMPANY-16206005

PATIENT
  Age: 83 Year
  Sex: Male

DRUGS (6)
  1. KENALOG-40 INJ [Suspect]
     Indication: CYSTOID MACULAR OEDEMA
     Route: 013
     Dates: start: 20100728
  2. KENALOG-40 INJ [Suspect]
     Indication: RETINAL VEIN OCCLUSION
     Route: 013
     Dates: start: 20100728
  3. COUMADIN [Concomitant]
  4. METOPROLOL [Concomitant]
  5. ZETIA [Concomitant]
  6. ANDERM [Concomitant]

REACTIONS (2)
  - Blindness transient [Recovered/Resolved]
  - Eye inflammation [Recovered/Resolved]
